FAERS Safety Report 24116090 (Version 1)
Quarter: 2024Q3

REPORT INFORMATION
  Report Type: Spontaneous
  Country: HK (occurrence: HK)
  Receive Date: 20240722
  Receipt Date: 20240722
  Transmission Date: 20241017
  Serious: Yes (Hospitalization)
  Sender: CHEPLAPHARM
  Company Number: HK-ROCHE-10000025239

PATIENT
  Age: 34 Year
  Sex: Male

DRUGS (7)
  1. CAPECITABINE [Suspect]
     Active Substance: CAPECITABINE
     Indication: Hepatic cancer
  2. OXALIPLATIN [Suspect]
     Active Substance: OXALIPLATIN
     Indication: Product used for unknown indication
  3. SORAFENIB [Suspect]
     Active Substance: SORAFENIB
     Indication: Product used for unknown indication
  4. DEXAMETHASONE [Concomitant]
     Active Substance: DEXAMETHASONE
  5. TELBIVUDINE [Concomitant]
     Active Substance: TELBIVUDINE
  6. ADEFOVIR DIPIVOXIL [Concomitant]
     Active Substance: ADEFOVIR DIPIVOXIL
  7. VITAMIN B6 [Concomitant]
     Active Substance: PYRIDOXINE HYDROCHLORIDE

REACTIONS (2)
  - Hemianopia [Unknown]
  - Product use in unapproved indication [Unknown]

NARRATIVE: CASE EVENT DATE: 20081017
